FAERS Safety Report 18641907 (Version 1)
Quarter: 2020Q4

REPORT INFORMATION
  Report Type: Spontaneous
  Country: US (occurrence: US)
  Receive Date: 20201218
  Receipt Date: 20201218
  Transmission Date: 20210114
  Serious: No
  Sender: FDA-Public Use
  Company Number: None

PATIENT
  Age: 77 Year
  Sex: Male

DRUGS (1)
  1. DEFERASIROX (DEFERASIROX 500MG TAB, EFFERVSC) [Suspect]
     Active Substance: DEFERASIROX
     Indication: IRON OVERLOAD
     Dosage: ?          OTHER FREQUENCY:AM;?
     Route: 048
     Dates: start: 20200618, end: 20201020

REACTIONS (1)
  - Constipation [None]

NARRATIVE: CASE EVENT DATE: 20200825
